APPROVED DRUG PRODUCT: ZOVIRAX
Active Ingredient: ACYCLOVIR
Strength: 5%
Dosage Form/Route: CREAM;TOPICAL
Application: N021478 | Product #001 | TE Code: AB
Applicant: BAUSCH HEALTH US LLC
Approved: Dec 30, 2002 | RLD: Yes | RS: No | Type: RX